FAERS Safety Report 24150480 (Version 2)
Quarter: 2024Q3

REPORT INFORMATION
  Report Type: Report from Study
  Country: US (occurrence: US)
  Receive Date: 20240730
  Receipt Date: 20240822
  Transmission Date: 20241017
  Serious: Yes (Hospitalization, Other)
  Sender: ABBVIE
  Company Number: US-ABBVIE-5823975

PATIENT
  Age: 66 Year
  Sex: Female

DRUGS (1)
  1. VENCLEXTA [Suspect]
     Active Substance: VENETOCLAX
     Indication: Chronic lymphocytic leukaemia
     Route: 048
     Dates: start: 202311

REACTIONS (5)
  - Arthralgia [Not Recovered/Not Resolved]
  - Seasonal allergy [Unknown]
  - Weight increased [Unknown]
  - Skin tightness [Unknown]
  - Oedema [Unknown]

NARRATIVE: CASE EVENT DATE: 20240401
